FAERS Safety Report 5774502-X (Version None)
Quarter: 2008Q2

REPORT INFORMATION
  Report Type: 
  Country: None (occurrence: None)
  Receive Date: 20080616
  Receipt Date: 20080605
  Transmission Date: 20081010
  Serious: Yes (Hospitalization)
  Sender: FDA-Public Use
  Company Number: FR-PFIZER INC-2008048236

PATIENT
  Age: 69 Year
  Sex: Female

DRUGS (6)
  1. CLINDAMYCIN HCL [Suspect]
     Indication: SURGERY
     Dates: start: 20080501, end: 20080601
  2. SINTROM [Concomitant]
  3. KARDEGIC [Concomitant]
  4. FUROSEMIDE [Concomitant]
  5. CARDENSIEL [Concomitant]
  6. PRAVASTATIN SODIUM [Concomitant]

REACTIONS (4)
  - DERMATITIS EXFOLIATIVE [None]
  - DRUG RASH WITH EOSINOPHILIA AND SYSTEMIC SYMPTOMS [None]
  - NEPHRITIS [None]
  - RENAL DISORDER [None]
